FAERS Safety Report 4637396-1 (Version None)
Quarter: 2005Q2

REPORT INFORMATION
  Report Type: 
  Country: None (occurrence: None)
  Receive Date: 20050418
  Receipt Date: 20050407
  Transmission Date: 20051028
  Serious: Yes (Other)
  Sender: FDA-Public Use
  Company Number: CA-JNJFOC-20050106936

PATIENT
  Sex: Female
  Weight: 34 kg

DRUGS (5)
  1. DURAGESIC-100 [Suspect]
     Route: 062
     Dates: start: 20050105
  2. CLINDAMYCIN [Concomitant]
     Indication: PNEUMONIA
     Route: 042
  3. CEFTRIAXONE [Concomitant]
     Indication: PNEUMONIA
  4. MORPHINE [Concomitant]
     Indication: PAIN
     Route: 058
  5. NALOXONE [Concomitant]
     Dosage: AS NEEDED

REACTIONS (4)
  - DEPRESSED LEVEL OF CONSCIOUSNESS [None]
  - DRUG ABUSER [None]
  - PNEUMONIA [None]
  - RESPIRATORY FAILURE [None]
